FAERS Safety Report 9912084 (Version 1)
Quarter: 2014Q1

REPORT INFORMATION
  Report Type: Spontaneous
  Country: US (occurrence: US)
  Receive Date: 20140219
  Receipt Date: 20140219
  Transmission Date: 20141002
  Serious: No
  Sender: FDA-Public Use
  Company Number: US-009507513-1402USA007692

PATIENT
  Age: 18 Year
  Sex: Female

DRUGS (1)
  1. PROVENTIL [Suspect]
     Indication: HYPERSENSITIVITY
     Dosage: 1 PUFF AS NEEDED
     Route: 055

REACTIONS (3)
  - Cough [Not Recovered/Not Resolved]
  - Drug dose omission [Unknown]
  - Product quality issue [Unknown]
